FAERS Safety Report 9780111 (Version 1)
Quarter: 2013Q4

REPORT INFORMATION
  Report Type: Report from Study
  Country: VE (occurrence: VE)
  Receive Date: 20131223
  Receipt Date: 20131223
  Transmission Date: 20140711
  Serious: Yes (Other)
  Sender: FDA-Public Use
  Company Number: VE-ABBVIE-13P-178-1181491-00

PATIENT
  Age: 40 Year
  Sex: Female
  Weight: 83 kg

DRUGS (1)
  1. HUMIRA [Suspect]
     Indication: PSORIASIS
     Route: 058
     Dates: start: 20120515, end: 201307

REACTIONS (2)
  - Hepatomegaly [Not Recovered/Not Resolved]
  - Hepatitis B [Not Recovered/Not Resolved]
